FAERS Safety Report 14902250 (Version 2)
Quarter: 2022Q2

REPORT INFORMATION
  Report Type: Report from Study
  Country: US (occurrence: US)
  Receive Date: 20180516
  Receipt Date: 20220622
  Transmission Date: 20220721
  Serious: No
  Sender: FDA-Public Use
  Company Number: US-TAKEDA-2018TUS016728

PATIENT
  Sex: Female
  Weight: 75.737 kg

DRUGS (13)
  1. VEDOLIZUMAB [Suspect]
     Active Substance: VEDOLIZUMAB
     Indication: Colitis ulcerative
     Dosage: UNK
     Route: 042
     Dates: start: 2017
  2. POTASSIUM [Concomitant]
     Active Substance: POTASSIUM
     Indication: Supplementation therapy
     Dosage: UNK UNK, QD
     Route: 048
     Dates: start: 2014
  3. CALCIUM [Concomitant]
     Active Substance: CALCIUM
     Indication: Supplementation therapy
     Dosage: UNK UNK, QD
     Route: 048
     Dates: start: 2014
  4. CRESTOR [Concomitant]
     Active Substance: ROSUVASTATIN CALCIUM
     Indication: Blood cholesterol abnormal
     Dosage: UNK UNK, QD
     Route: 048
     Dates: start: 2014
  5. HYDROCHLOROTHIAZIDE [Concomitant]
     Active Substance: HYDROCHLOROTHIAZIDE
     Indication: Blood pressure abnormal
     Dosage: UNK UNK, QD
     Route: 048
  6. CLARITIN                           /00413701/ [Concomitant]
     Indication: Hypersensitivity
     Dosage: UNK UNK, QD
     Route: 048
     Dates: start: 2014
  7. ESCITALOPRAM [Concomitant]
     Active Substance: ESCITALOPRAM OXALATE
     Indication: Generalised anxiety disorder
     Dosage: UNK UNK, QD
     Route: 048
     Dates: start: 2014
  8. MIRALAX [Concomitant]
     Active Substance: POLYETHYLENE GLYCOL 3350
     Indication: Colitis ulcerative
     Dosage: UNK UNK, QD
     Route: 048
     Dates: start: 2014
  9. FISH OIL [Concomitant]
     Active Substance: FISH OIL
     Indication: Colitis ulcerative
     Dosage: UNK UNK, QD
     Route: 048
     Dates: start: 2014
  10. CO Q 10                            /00517201/ [Concomitant]
     Indication: Colitis ulcerative
     Dosage: UNK UNK, QD
     Route: 048
     Dates: start: 2014
  11. BIOTIN [Concomitant]
     Active Substance: BIOTIN
     Indication: Colitis ulcerative
     Dosage: UNK UNK, QD
     Route: 048
     Dates: start: 2014
  12. PEPCID AC [Concomitant]
     Active Substance: FAMOTIDINE
     Indication: Colitis ulcerative
     Dosage: UNK UNK, QD
     Route: 048
     Dates: start: 2014
  13. GAS-X [Concomitant]
     Active Substance: DIMETHICONE
     Indication: Colitis ulcerative
     Dosage: UNK UNK, QD
     Route: 048
     Dates: start: 2014

REACTIONS (1)
  - Haemorrhoids [Not Recovered/Not Resolved]
